FAERS Safety Report 20605897 (Version 1)
Quarter: 2022Q1

REPORT INFORMATION
  Report Type: Spontaneous
  Country: CO (occurrence: CO)
  Receive Date: 20220317
  Receipt Date: 20220317
  Transmission Date: 20220423
  Serious: Yes (Other)
  Sender: FDA-Public Use
  Company Number: CO-SA-SAC20220311001544

PATIENT
  Age: 41 Year
  Sex: Female

DRUGS (4)
  1. LEFLUNOMIDE [Suspect]
     Active Substance: LEFLUNOMIDE
  2. CALCIUM [Suspect]
     Active Substance: CALCIUM
     Dosage: UNK,QW
  3. ACETAMINOPHEN [Suspect]
     Active Substance: ACETAMINOPHEN
  4. ENBREL [Suspect]
     Active Substance: ETANERCEPT
     Dosage: 50 IU,QW
     Route: 058

REACTIONS (2)
  - Thyroid disorder [Unknown]
  - Dizziness [Not Recovered/Not Resolved]

NARRATIVE: CASE EVENT DATE: 20220201
